FAERS Safety Report 15648486 (Version 1)
Quarter: 2018Q4

REPORT INFORMATION
  Report Type: Report from Study
  Country: US (occurrence: US)
  Receive Date: 20181122
  Receipt Date: 20181122
  Transmission Date: 20190205
  Serious: No
  Sender: FDA-Public Use
  Company Number: PHEH2018US049078

PATIENT
  Sex: Female

DRUGS (1)
  1. GILENYA [Suspect]
     Active Substance: FINGOLIMOD HYDROCHLORIDE
     Indication: MULTIPLE SCLEROSIS
     Dosage: 0.5 MG, QD
     Route: 048

REACTIONS (10)
  - Joint stiffness [Unknown]
  - Cough [Unknown]
  - Urinary tract infection [Unknown]
  - Back pain [Unknown]
  - Visual impairment [Unknown]
  - Abdominal pain [Unknown]
  - Influenza like illness [Unknown]
  - Cardiac murmur [Unknown]
  - Diarrhoea [Unknown]
  - Musculoskeletal stiffness [Unknown]
